FAERS Safety Report 10037663 (Version 1)
Quarter: 2014Q1

REPORT INFORMATION
  Report Type: Spontaneous
  Country: US (occurrence: None)
  Receive Date: 20140324
  Receipt Date: 20140324
  Transmission Date: 20141002
  Serious: Yes (Other)
  Sender: FDA-Public Use
  Company Number: UTC-045869

PATIENT
  Age: 55 Year
  Sex: Female
  Weight: 62.14 kg

DRUGS (1)
  1. REMODULIN [Suspect]
     Dosage: 0.03875 UG/KG 1 IN 1 MIN
     Route: 058
     Dates: start: 20120425

REACTIONS (3)
  - Mobility decreased [None]
  - Pain [None]
  - Musculoskeletal stiffness [None]
